FAERS Safety Report 4786618-5 (Version None)
Quarter: 2005Q3

REPORT INFORMATION
  Report Type: 
  Country: None (occurrence: None)
  Receive Date: 20050927
  Receipt Date: 20050624
  Transmission Date: 20060218
  Serious: No
  Sender: FDA-Public Use
  Company Number: USA0506101337

PATIENT
  Age: 7 Year
  Sex: Male
  Weight: 23 kg

DRUGS (3)
  1. STRATTERA [Suspect]
     Indication: ATTENTION DEFICIT/HYPERACTIVITY DISORDER
     Dates: start: 20040101
  2. RITALIN [Concomitant]
  3. DDAVP (DESMOPRESSIN ACETATE) [Concomitant]

REACTIONS (4)
  - AGGRESSION [None]
  - CRYING [None]
  - IRRITABILITY [None]
  - SLEEP DISORDER [None]
